FAERS Safety Report 4565557-9 (Version None)
Quarter: 2005Q1

REPORT INFORMATION
  Report Type: 
  Country: None (occurrence: None)
  Receive Date: 20050126
  Receipt Date: 20050110
  Transmission Date: 20050727
  Serious: No
  Sender: FDA-Public Use
  Company Number: USA050188019

PATIENT
  Sex: Female

DRUGS (1)
  1. STRATTERA [Suspect]
     Dates: end: 20041201

REACTIONS (2)
  - LIVER DISORDER [None]
  - TACHYCARDIA [None]
